FAERS Safety Report 14974960 (Version 2)
Quarter: 2018Q2

REPORT INFORMATION
  Report Type: Report from Study
  Country: CA (occurrence: CA)
  Receive Date: 20180605
  Receipt Date: 20180626
  Transmission Date: 20180711
  Serious: Yes (Hospitalization)
  Sender: FDA-Public Use
  Company Number: CA-JNJFOC-20180540712

PATIENT
  Age: 22 Year
  Sex: Female
  Weight: 96.7 kg

DRUGS (1)
  1. STELARA [Suspect]
     Active Substance: USTEKINUMAB
     Indication: CROHN^S DISEASE
     Dosage: STRENGTH = 90 MG
     Route: 058
     Dates: start: 20171109

REACTIONS (4)
  - Kidney infection [Unknown]
  - Arthritis enteropathic [Unknown]
  - Nephrolithiasis [Unknown]
  - Kidney enlargement [Unknown]

NARRATIVE: CASE EVENT DATE: 2018
